FAERS Safety Report 25992725 (Version 2)
Quarter: 2025Q4

REPORT INFORMATION
  Report Type: Spontaneous
  Country: BR (occurrence: BR)
  Receive Date: 20251103
  Receipt Date: 20251120
  Transmission Date: 20260117
  Serious: Yes (Other)
  Sender: TAKEDA
  Company Number: BR-TAKEDA-2025TUS096518

PATIENT
  Age: 67 Year
  Sex: Female

DRUGS (3)
  1. FEIBA NF [Suspect]
     Active Substance: ANTI-INHIBITOR COAGULANT COMPLEX
     Indication: Haemorrhage
     Dosage: 90 INTERNATIONAL UNIT/KILOGRAM
  2. PREDNISONE [Suspect]
     Active Substance: PREDNISONE
     Indication: Product used for unknown indication
     Dosage: UNK
  3. MYCOPHENOLIC ACID [Concomitant]
     Active Substance: MYCOPHENOLIC ACID
     Dosage: UNK

REACTIONS (10)
  - Anti factor VIII antibody increased [Unknown]
  - Pemphigoid [Unknown]
  - Syncope [Unknown]
  - Retroperitoneal haematoma [Unknown]
  - Internal haemorrhage [Unknown]
  - Subcutaneous haematoma [Unknown]
  - Pain in extremity [Unknown]
  - Peripheral swelling [Unknown]
  - Abdominal pain [Unknown]
  - Hypotension [Unknown]

NARRATIVE: CASE EVENT DATE: 20181220
